FAERS Safety Report 5993745-3 (Version None)
Quarter: 2008Q4

REPORT INFORMATION
  Report Type: 
  Country: None (occurrence: None)
  Receive Date: 20081212
  Receipt Date: 20081205
  Transmission Date: 20090506
  Serious: Yes (Hospitalization)
  Sender: FDA-Public Use
  Company Number: IT-ASTRAZENECA-2008SE05632

PATIENT
  Sex: Female

DRUGS (1)
  1. PROPOFOL [Suspect]

REACTIONS (2)
  - HYPOTENSION [None]
  - RESPIRATORY FAILURE [None]
